FAERS Safety Report 7525955-8 (Version None)
Quarter: 2011Q2

REPORT INFORMATION
  Report Type: 
  Country: None (occurrence: None)
  Receive Date: 20110606
  Receipt Date: 20110527
  Transmission Date: 20111010
  Serious: Yes (Hospitalization)
  Sender: FDA-Public Use
  Company Number: BR-ASTRAZENECA-2010SE31802

PATIENT
  Age: 82 Year
  Sex: Female
  Weight: 90 kg

DRUGS (7)
  1. NOLVADEX [Suspect]
     Indication: BREAST CANCER
     Route: 048
     Dates: start: 20100101
  2. HYGROTON [Concomitant]
     Indication: HYPERTENSION
     Route: 048
     Dates: start: 20030101
  3. LORAX [Concomitant]
     Indication: DEPRESSION
     Route: 048
     Dates: start: 19900101
  4. ENALAPRIL MALEATE [Concomitant]
     Indication: HYPERTENSION
     Route: 048
     Dates: start: 20030101
  5. LIPITOR [Concomitant]
     Indication: BLOOD CHOLESTEROL ABNORMAL
     Route: 048
     Dates: start: 20000101
  6. ATENOLOL [Suspect]
     Indication: HYPERTENSION
     Route: 048
     Dates: start: 20030101
  7. LUDIOMIL [Concomitant]
     Indication: DEPRESSION
     Route: 048
     Dates: start: 19900101

REACTIONS (5)
  - MASTECTOMY [None]
  - FLATULENCE [None]
  - RADIOTHERAPY [None]
  - BREAST CANCER [None]
  - GLAUCOMA [None]
